FAERS Safety Report 7711048-3 (Version None)
Quarter: 2011Q3

REPORT INFORMATION
  Report Type: 
  Country: None (occurrence: None)
  Receive Date: 20110826
  Receipt Date: 20110817
  Transmission Date: 20111222
  Serious: Yes (Hospitalization)
  Sender: FDA-Public Use
  Company Number: FR-US-EMD SERONO, INC.-7077639

PATIENT
  Age: 56 Year
  Sex: Female

DRUGS (3)
  1. NOVANTRONE [Suspect]
     Indication: ACUTE MYELOID LEUKAEMIA
     Dates: start: 20080603, end: 20080604
  2. CYTARABINE [Suspect]
  3. ANTIBIOTICS [Concomitant]
     Indication: ESCHERICHIA SEPSIS
     Dates: start: 20080601

REACTIONS (4)
  - C-REACTIVE PROTEIN INCREASED [None]
  - MYOCARDITIS POST INFECTION [None]
  - PYREXIA [None]
  - CARDIAC FAILURE [None]
